FAERS Safety Report 5389840-2 (Version None)
Quarter: 2007Q3

REPORT INFORMATION
  Report Type: 
  Country: None (occurrence: None)
  Receive Date: 20070718
  Receipt Date: 20070711
  Transmission Date: 20080115
  Serious: Yes (Other)
  Sender: FDA-Public Use
  Company Number: PHBS2007FR11906

PATIENT
  Age: 39 Year
  Sex: Female

DRUGS (1)
  1. TAREG [Suspect]
     Dosage: 80 MG/DAY
     Route: 048

REACTIONS (2)
  - DRUG EXPOSURE DURING PREGNANCY [None]
  - OLIGURIA [None]
